FAERS Safety Report 23218189 (Version 1)
Quarter: 2023Q4

REPORT INFORMATION
  Report Type: Spontaneous
  Country: US (occurrence: US)
  Receive Date: 20231122
  Receipt Date: 20231122
  Transmission Date: 20240109
  Serious: Yes (Hospitalization, Other)
  Sender: FDA-Public Use
  Company Number: US-GILEAD-2023-0651855

PATIENT
  Age: 53 Year
  Sex: Male
  Weight: 144.22 kg

DRUGS (5)
  1. YESCARTA [Suspect]
     Active Substance: AXICABTAGENE CILOLEUCEL
     Indication: Follicular lymphoma
     Dosage: 68 ML, ONCE
     Route: 042
     Dates: start: 20231016, end: 20231016
  2. LEVETIRACETAM [Concomitant]
     Active Substance: LEVETIRACETAM
  3. VALACYCLOVIR [Concomitant]
     Active Substance: VALACYCLOVIR HYDROCHLORIDE
  4. CYTOXAN [Concomitant]
     Active Substance: CYCLOPHOSPHAMIDE
     Dosage: UNK
     Dates: start: 20231011, end: 20231013
  5. FLUDARABINE [Concomitant]
     Active Substance: FLUDARABINE PHOSPHATE
     Dosage: UNK
     Dates: start: 20231011, end: 20231013

REACTIONS (2)
  - Cytokine release syndrome [Recovered/Resolved]
  - Essential tremor [Unknown]

NARRATIVE: CASE EVENT DATE: 20231018
